FAERS Safety Report 23774359 (Version 1)
Quarter: 2024Q2

REPORT INFORMATION
  Report Type: Spontaneous
  Country: US (occurrence: US)
  Receive Date: 20240423
  Receipt Date: 20240423
  Transmission Date: 20240716
  Serious: Yes (Other)
  Sender: FDA-Public Use
  Company Number: US-TEVA-VS-3186882

PATIENT
  Age: 71 Year
  Sex: Female

DRUGS (2)
  1. ALBUTEROL SULFATE [Suspect]
     Active Substance: ALBUTEROL SULFATE
     Indication: Cough
     Dosage: 90 MCG/DOSE
     Route: 065
     Dates: start: 2017
  2. CONCERTA [Concomitant]
     Active Substance: METHYLPHENIDATE HYDROCHLORIDE
     Dosage: MORNING

REACTIONS (12)
  - Aspergillus infection [Unknown]
  - Headache [Unknown]
  - Hypertension [Unknown]
  - Cyanosis [Unknown]
  - Product prescribing issue [Unknown]
  - Arthropathy [Unknown]
  - Dizziness [Unknown]
  - Poor peripheral circulation [Unknown]
  - Product use in unapproved indication [Unknown]
  - Erythema [Unknown]
  - Dizziness [Unknown]
  - Attention deficit hyperactivity disorder [Unknown]
